FAERS Safety Report 9026428 (Version 4)
Quarter: 2013Q2

REPORT INFORMATION
  Report Type: Report from Study
  Country: JP (occurrence: JP)
  Receive Date: 20130123
  Receipt Date: 20130517
  Transmission Date: 20140414
  Serious: Yes (Hospitalization)
  Sender: FDA-Public Use
  Company Number: JP-009507513-1301JPN009493

PATIENT
  Age: 70 Year
  Sex: Female
  Weight: 55 kg

DRUGS (21)
  1. REBETOL [Suspect]
     Indication: CHRONIC HEPATITIS C
     Dosage: 200 MG IN THE MORNING AND 400 MG IN THE EVENING
     Route: 048
     Dates: start: 20110516, end: 20110531
  2. REBETOL [Suspect]
     Dosage: 200 MG, BID
     Route: 048
     Dates: start: 20110601, end: 20110715
  3. REBETOL [Suspect]
     Dosage: 200 MG IN THE MORNING, 200 MG IN THE EVENING/200 MG IN THE MORNING, 400 MG IN THE EVENING
     Route: 048
     Dates: start: 20110716, end: 20111013
  4. REBETOL [Suspect]
     Dosage: 200 MG IN THE MORNING, 400 MG IN THE EVENING
     Route: 048
     Dates: start: 20111014, end: 20120424
  5. FERON [Suspect]
     Indication: CHRONIC HEPATITIS C
     Dosage: 6 MILLION IU, TIW
     Route: 041
     Dates: start: 20110516, end: 20120406
  6. URSO [Concomitant]
     Indication: CHRONIC HEPATITIS C
     Dosage: THE DIVIDED DOSE FREQUENCY IS UNCERTAIN
     Route: 048
     Dates: end: 20110821
  7. URSO [Concomitant]
     Dosage: THE DIVIDED DOSE FREQUENCY IS UNCERTAIN
     Route: 048
     Dates: start: 20110822, end: 20110925
  8. URSO [Concomitant]
     Dosage: DIVIDED DOSE FREQUENCY UNKNOWN
     Route: 048
     Dates: start: 20120118, end: 20121016
  9. URSO [Concomitant]
     Dosage: THE DIVIDED DOSE FREQUENCY IS UNCERTAIN
     Route: 048
     Dates: start: 20121017, end: 20121204
  10. URSO [Concomitant]
     Dosage: THE DIVIDED DOSE FREQUENCY IS UNCERTAIN
     Route: 048
     Dates: start: 20121205
  11. AMLODIN (AMLODIPINE BESYLATE) [Concomitant]
     Indication: HYPERTENSION
     Dosage: THE DIVIDED DOSE FREQUENCY IS UNCERTAIN
     Route: 048
     Dates: start: 20110126, end: 20110905
  12. AMLODIN (AMLODIPINE BESYLATE) [Concomitant]
     Dosage: 2.5 MG, QD
     Route: 048
     Dates: start: 20110906
  13. NU-LOTAN TABLETS 50MG [Concomitant]
     Indication: HYPERTENSION
     Dosage: THE DIVIDED DOSE FREQUENCY IS UNCERTAIN
     Route: 048
     Dates: start: 20110809
  14. PREMINENT TABLETS [Concomitant]
     Indication: HYPERTENSION
     Dosage: 1 DF, QD
     Route: 048
     Dates: start: 20110224, end: 20110808
  15. AMARYL [Concomitant]
     Indication: DIABETES MELLITUS
     Dosage: THE DIVIDED DOSE FREQUENCY IS UNCERTAIN
     Route: 048
     Dates: start: 20100729, end: 20110627
  16. AMARYL [Concomitant]
     Dosage: 0.5 MG, QD
     Route: 048
     Dates: start: 20110628, end: 20111005
  17. AMARYL [Concomitant]
     Dosage: 0.5 MG, QD
     Route: 048
     Dates: start: 20111114, end: 20111219
  18. AMARYL [Concomitant]
     Dosage: THE DIVIDED DOSE FREQUENCY IS UNCERTAIN
     Route: 048
     Dates: start: 20111228
  19. GASTER [Concomitant]
     Indication: GASTRITIS
     Dosage: THE DIVIDED DOSE FREQUENCY IS UNCERTAIN
     Route: 048
  20. ACTONEL [Concomitant]
     Indication: OSTEOPOROSIS
     Dosage: 17.5 MG, QW
     Route: 048
     Dates: start: 20090422
  21. CALONAL [Concomitant]
     Indication: PYREXIA
     Dosage: 300 MG, TIW
     Route: 048
     Dates: start: 20110516, end: 20120406

REACTIONS (3)
  - Cellulitis [Recovering/Resolving]
  - Pyrexia [Recovered/Resolved]
  - Haemoglobin decreased [Recovered/Resolved]
